FAERS Safety Report 21018324 (Version 1)
Quarter: 2022Q2

REPORT INFORMATION
  Report Type: Spontaneous
  Country: US (occurrence: None)
  Receive Date: 20220628
  Receipt Date: 20220628
  Transmission Date: 20220721
  Serious: Yes (Other)
  Sender: FDA-Public Use
  Company Number: None

PATIENT
  Age: 64 Year
  Sex: Male
  Weight: 80.55 kg

DRUGS (21)
  1. DUPIXENT [Suspect]
     Active Substance: DUPILUMAB
     Indication: Dermatitis atopic
     Dosage: OTHER FREQUENCY : Q4WEEKS;?
     Route: 058
     Dates: start: 20211118
  2. ASPIRIN [Concomitant]
     Active Substance: ASPIRIN
  3. CALCIUM\VITAMIN D [Concomitant]
     Active Substance: CALCIUM\VITAMIN D
  4. CITALOPRAM [Concomitant]
     Active Substance: CITALOPRAM HYDROBROMIDE
  5. clomiphene 50 mg [Concomitant]
  6. HUMALOG KWIKPEN [Concomitant]
     Active Substance: INSULIN LISPRO
  7. hydralazine 50 mg [Concomitant]
  8. hydroxyzine pamoate 50 mg [Concomitant]
  9. IPRATROPIUM BROMIDE [Concomitant]
     Active Substance: IPRATROPIUM BROMIDE
  10. iron tablet 240 mg [Concomitant]
  11. magnesium oxide 400 mg tab [Concomitant]
  12. MONTELUKAST SODIUM [Concomitant]
     Active Substance: MONTELUKAST SODIUM
  13. VITAMINS [Concomitant]
     Active Substance: VITAMINS
  14. olmesartan 5 mg [Concomitant]
  15. FISH OIL\OMEGA-3 FATTY ACIDS [Concomitant]
     Active Substance: FISH OIL\OMEGA-3 FATTY ACIDS
  16. RESTASIS [Concomitant]
     Active Substance: CYCLOSPORINE
  17. ROSUVASTATIN [Concomitant]
     Active Substance: ROSUVASTATIN
  18. tacrolimus 0.1% topical [Concomitant]
  19. Tresiba 200 units/ml [Concomitant]
  20. Unithyroid 125 mcg [Concomitant]
  21. vitamin D 2000 units [Concomitant]

REACTIONS (2)
  - Dermatitis atopic [None]
  - Symptom recurrence [None]
